FAERS Safety Report 9512278 (Version 2)
Quarter: 2014Q3

REPORT INFORMATION
  Report Type: Spontaneous
  Country: US (occurrence: US)
  Receive Date: 20130910
  Receipt Date: 20140901
  Transmission Date: 20150326
  Serious: No
  Sender: FDA-Public Use
  Company Number: US-SANOFI-AVENTIS-2013SA080375

PATIENT
  Age: 75 Year
  Sex: Female

DRUGS (1)
  1. AVAPRO [Suspect]
     Active Substance: IRBESARTAN
     Indication: HYPERTENSION
     Dosage: TAKEN FROM- 10 YEARS, DOSE - HALF IN THE MORNING AND HALF IN EVENING/ 150 MG BID
     Route: 048

REACTIONS (5)
  - Fear [Unknown]
  - Wrong technique in drug usage process [Unknown]
  - Psychomotor hyperactivity [Unknown]
  - Feeling abnormal [Unknown]
  - Erythema [Unknown]
